FAERS Safety Report 24064104 (Version 2)
Quarter: 2024Q3

REPORT INFORMATION
  Report Type: Spontaneous
  Country: IT (occurrence: IT)
  Receive Date: 20240709
  Receipt Date: 20240912
  Transmission Date: 20241016
  Serious: Yes (Hospitalization, Other)
  Sender: RANBAXY
  Company Number: IT-SUN PHARMACEUTICAL INDUSTRIES LTD-2024R1-455498

PATIENT
  Age: 66 Year
  Sex: Female

DRUGS (8)
  1. DIGOXIN [Suspect]
     Active Substance: DIGOXIN
     Indication: Atrial fibrillation
     Dosage: 0.25 MILLIGRAM, DAILY
     Route: 065
  2. BISOPROLOL [Suspect]
     Active Substance: BISOPROLOL\BISOPROLOL FUMARATE
     Indication: Hypertension
     Dosage: 5 MILLIGRAM, BID
     Route: 065
  3. BISOPROLOL [Suspect]
     Active Substance: BISOPROLOL\BISOPROLOL FUMARATE
     Indication: Atrial fibrillation
  4. RAMIPRIL [Suspect]
     Active Substance: RAMIPRIL
     Indication: Hypertension
     Dosage: 2.5 MILLIGRAM, DAILY
     Route: 065
  5. RAMIPRIL [Suspect]
     Active Substance: RAMIPRIL
     Indication: Atrial fibrillation
  6. SPIRONOLACTONE [Suspect]
     Active Substance: SPIRONOLACTONE
     Indication: Hypertension
     Dosage: 25 MILLIGRAM, DAILY
     Route: 065
  7. FUROSEMIDE [Suspect]
     Active Substance: FUROSEMIDE
     Indication: Hypertension
     Dosage: 25 MILLIGRAM, DAILY
     Route: 065
  8. PRAVASTATIN [Suspect]
     Active Substance: PRAVASTATIN
     Indication: Atrial fibrillation
     Dosage: 40 MILLIGRAM, DAILY
     Route: 065

REACTIONS (5)
  - Toxicity to various agents [Unknown]
  - BRASH syndrome [Recovering/Resolving]
  - Visual impairment [Unknown]
  - Overdose [Unknown]
  - Chronic kidney disease [Unknown]
